FAERS Safety Report 4318932-1 (Version None)
Quarter: 2004Q1

REPORT INFORMATION
  Report Type: 
  Country: None (occurrence: None)
  Receive Date: 20040316
  Receipt Date: 20040303
  Transmission Date: 20041129
  Serious: Yes (Other)
  Sender: FDA-Public Use
  Company Number: HQWYE571727JAN04

PATIENT
  Age: 43 Year
  Sex: Female

DRUGS (13)
  1. EFFEXOR [Suspect]
     Indication: ADJUSTMENT DISORDER
     Dosage: 75 MG 1X PER 1 DAY
     Route: 048
     Dates: start: 20030721, end: 20030701
  2. EFFEXOR [Suspect]
     Indication: DEPRESSION
     Dosage: 75 MG 1X PER 1 DAY
     Route: 048
     Dates: start: 20030721, end: 20030701
  3. EFFEXOR [Suspect]
     Indication: ADJUSTMENT DISORDER
     Dosage: 75 MG 1X PER 1 DAY
     Route: 048
     Dates: start: 20030808, end: 20030811
  4. EFFEXOR [Suspect]
     Indication: ADJUSTMENT DISORDER
     Dosage: 150 MG 1X PER 1 DAY
     Route: 048
     Dates: start: 20030812, end: 20030813
  5. EFFEXOR [Suspect]
     Indication: ADJUSTMENT DISORDER
     Dosage: 225 MG 1X PER 1 DAY
     Route: 048
     Dates: start: 20030814, end: 20030909
  6. EFFEXOR [Suspect]
     Indication: ADJUSTMENT DISORDER
     Dosage: 300 MG 1X PER 1 DAY
     Route: 048
     Dates: start: 20030910
  7. EFFEXOR XR [Suspect]
     Indication: ADJUSTMENT DISORDER
     Dosage: 300 MG 1X PER 1 DAY
     Route: 048
     Dates: start: 20030101
  8. REMERON [Suspect]
     Indication: ADJUSTMENT DISORDER
     Dosage: 30 MG 1X PER 1 DAY
     Route: 048
     Dates: start: 20030301, end: 20030531
  9. REMERON [Suspect]
     Indication: ADJUSTMENT DISORDER
     Dosage: 60 MG 1X PER 1 DAY
     Route: 048
     Dates: start: 20030601, end: 20030717
  10. REMERON [Suspect]
     Dosage: 45 MG 1X PER 1 DAY
     Route: 048
     Dates: start: 20030718, end: 20030818
  11. VALPROATE SODIUM [Concomitant]
  12. ATARAX [Concomitant]
  13. SEROQUEL [Concomitant]

REACTIONS (5)
  - CONDITION AGGRAVATED [None]
  - FEELING ABNORMAL [None]
  - FEELING HOT [None]
  - HOT FLUSH [None]
  - HYPERHIDROSIS [None]
